FAERS Safety Report 23353079 (Version 2)
Quarter: 2024Q4

REPORT INFORMATION
  Report Type: Spontaneous
  Country: US (occurrence: US)
  Receive Date: 20231230
  Receipt Date: 20241009
  Transmission Date: 20250115
  Serious: No
  Sender: GLAXOSMITHKLINE
  Company Number: US-GSKCCFUS-Case-01891204_AE-105536

PATIENT
  Age: 52 Year
  Sex: Female

DRUGS (2)
  1. NUCALA [Interacting]
     Active Substance: MEPOLIZUMAB
     Indication: Asthma
     Dosage: 100 MG, MO
  2. TEZSPIRE [Interacting]
     Active Substance: TEZEPELUMAB-EKKO
     Indication: Asthma
     Dosage: UNK

REACTIONS (2)
  - Drug interaction [Unknown]
  - Product prescribing error [Unknown]
